FAERS Safety Report 24302252 (Version 2)
Quarter: 2024Q3

REPORT INFORMATION
  Report Type: Spontaneous
  Country: IN (occurrence: IN)
  Receive Date: 20240910
  Receipt Date: 20240917
  Transmission Date: 20241017
  Serious: Yes (Hospitalization, Other)
  Sender: PFIZER
  Company Number: IN-PFIZER INC-PV202400088498

PATIENT
  Age: 50 Year
  Sex: Male

DRUGS (4)
  1. LORLATINIB [Suspect]
     Active Substance: LORLATINIB
     Dosage: 100 MG
     Route: 048
     Dates: start: 202406
  2. LORLATINIB [Suspect]
     Active Substance: LORLATINIB
     Dosage: 50 MG
     Route: 048
     Dates: start: 20240621, end: 20240707
  3. LORLATINIB [Suspect]
     Active Substance: LORLATINIB
     Dosage: 50 MG
     Route: 048
     Dates: start: 202407
  4. LORLATINIB [Suspect]
     Active Substance: LORLATINIB
     Dosage: 100 MG, 1X/DAY
     Route: 048

REACTIONS (13)
  - Asthenia [Unknown]
  - Pyrexia [Unknown]
  - Diarrhoea [Unknown]
  - Seizure [Recovered/Resolved]
  - Hemiparesis [Recovering/Resolving]
  - Hemiplegia [Unknown]
  - Thrombocytopenia [Unknown]
  - Haemoglobin decreased [Unknown]
  - Blood triglycerides increased [Unknown]
  - Body mass index increased [Unknown]
  - Headache [Unknown]
  - Weight decreased [Unknown]
  - Neoplasm progression [Unknown]

NARRATIVE: CASE EVENT DATE: 20240807
